FAERS Safety Report 13164493 (Version 1)
Quarter: 2017Q1

REPORT INFORMATION
  Report Type: Spontaneous
  Country: CN (occurrence: CN)
  Receive Date: 20170130
  Receipt Date: 20170130
  Transmission Date: 20170428
  Serious: Yes (Congenital Anomaly)
  Sender: FDA-Public Use
  Company Number: PHHY2017CN008218

PATIENT
  Age: 1 Year
  Sex: Male

DRUGS (1)
  1. OXCARBAZEPINE. [Suspect]
     Active Substance: OXCARBAZEPINE
     Indication: FOETAL EXPOSURE DURING PREGNANCY
     Dosage: MOTHER DOSE (0.3 GRAM QD)
     Route: 064

REACTIONS (1)
  - Psychomotor hyperactivity [Unknown]

NARRATIVE: CASE EVENT DATE: 20161110
